FAERS Safety Report 15832340 (Version 2)
Quarter: 2019Q1

REPORT INFORMATION
  Report Type: Report from Study
  Country: CA (occurrence: CA)
  Receive Date: 20190116
  Receipt Date: 20190214
  Transmission Date: 20190417
  Serious: Yes (Death)
  Sender: FDA-Public Use
  Company Number: CA-TAIHO ONCOLOGY  INC-EU-2019-00103

PATIENT
  Age: 65 Year
  Sex: Male
  Weight: 94.1 kg

DRUGS (5)
  1. HYDROMORPHONE CONTIN [Concomitant]
     Active Substance: HYDROMORPHONE HYDROCHLORIDE
     Route: 048
  2. DILTIAZEM CR [Concomitant]
     Route: 048
  3. HYDROMORPHONE [Concomitant]
     Active Substance: HYDROMORPHONE
     Dosage: PRN
     Route: 048
  4. DECADRON [Concomitant]
     Active Substance: DEXAMETHASONE
     Route: 048
     Dates: start: 20181012
  5. LONSURF [Suspect]
     Active Substance: TIPIRACIL HYDROCHLORIDE\TRIFLURIDINE
     Indication: COLORECTAL CANCER METASTATIC
     Dosage: DOSAGE AND FREQUENCY UNKNOWN?COMPLETED ONE FULL CYCLE AUG/SEPT 2018?SECOND CYCLE HELD AS FOUND TO BE
     Route: 048
     Dates: start: 2018, end: 2018

REACTIONS (4)
  - General physical health deterioration [Not Recovered/Not Resolved]
  - Disease progression [Fatal]
  - Malignant neoplasm progression [None]
  - Atrial fibrillation [Unknown]

NARRATIVE: CASE EVENT DATE: 2018
